FAERS Safety Report 22185625 (Version 6)
Quarter: 2023Q2

REPORT INFORMATION
  Report Type: Report from Study
  Country: KR (occurrence: None)
  Receive Date: 20230407
  Receipt Date: 20230608
  Transmission Date: 20230722
  Serious: Yes (Hospitalization)
  Sender: FDA-Public Use
  Company Number: KR-Eisai Medical Research-EC-2023-137793

PATIENT
  Age: 58 Year
  Sex: Female
  Weight: 39.5 kg

DRUGS (18)
  1. LENVATINIB [Suspect]
     Active Substance: LENVATINIB
     Indication: Neoplasm malignant
     Route: 048
     Dates: start: 20230317, end: 20230329
  2. LENVATINIB [Suspect]
     Active Substance: LENVATINIB
     Route: 048
     Dates: start: 20230412
  3. PEMBROLIZUMAB [Suspect]
     Active Substance: PEMBROLIZUMAB
     Indication: Neoplasm malignant
     Route: 041
     Dates: start: 20230317, end: 20230317
  4. PEMBROLIZUMAB [Suspect]
     Active Substance: PEMBROLIZUMAB
     Route: 041
     Dates: start: 20230503
  5. BELZUTIFAN [Suspect]
     Active Substance: BELZUTIFAN
     Indication: Neoplasm malignant
     Route: 048
     Dates: start: 20230317, end: 20230329
  6. BELZUTIFAN [Suspect]
     Active Substance: BELZUTIFAN
     Route: 048
     Dates: start: 20230412
  7. OXYCODONE HYDROCHLORIDE [Concomitant]
     Active Substance: OXYCODONE HYDROCHLORIDE
     Dates: start: 20230210
  8. MORPHINE SULFATE [Concomitant]
     Active Substance: MORPHINE SULFATE
     Dates: start: 20230314, end: 20230320
  9. NALOXONE HYDROCHLORIDE\OXYCODONE HYDROCHLORIDE [Concomitant]
     Active Substance: NALOXONE HYDROCHLORIDE\OXYCODONE HYDROCHLORIDE
     Dates: start: 20230210, end: 20230320
  10. LEVOTHYROXINE SODIUM [Concomitant]
     Active Substance: LEVOTHYROXINE SODIUM
     Dates: start: 20230228, end: 20230416
  11. ULTRACET ER SEMI [Concomitant]
     Dates: start: 20230306
  12. NORZYME [Concomitant]
     Dates: start: 20230315
  13. MAGMIL S [Concomitant]
     Dates: start: 20230321
  14. FENTANYL [Concomitant]
     Active Substance: FENTANYL
     Dates: start: 20230320
  15. NEWDOTOP [Concomitant]
     Dates: start: 20230328
  16. MACPERAN [METOCLOPRAMIDE HYDROCHLORIDE] [Concomitant]
     Route: 042
     Dates: start: 20230313, end: 20230317
  17. DULACKHAN [Concomitant]
     Dates: start: 20230328
  18. DULCOLAX (BISACODYL) [Concomitant]
     Active Substance: BISACODYL
     Dates: start: 20230318, end: 20230318

REACTIONS (1)
  - Pneumonia [Recovered/Resolved]

NARRATIVE: CASE EVENT DATE: 20230329
